FAERS Safety Report 9262354 (Version 1)
Quarter: 2013Q2

REPORT INFORMATION
  Report Type: Spontaneous
  Country: MA (occurrence: None)
  Receive Date: 20130425
  Receipt Date: 20130425
  Transmission Date: 20140414
  Serious: Yes (Hospitalization)
  Sender: FDA-Public Use
  Company Number: IPC201304-000143

PATIENT
  Age: 85 Year
  Sex: Male

DRUGS (2)
  1. METFORMIN HYDROCHLORIDE [Suspect]
     Indication: TYPE 2 DIABETES MELLITUS
     Dosage: 2 GRAM/DAY
  2. AMLODIPINE [Suspect]
     Indication: HYPERTENSION
     Dosage: 10 MG/DAY

REACTIONS (13)
  - Hypoglycaemia [None]
  - Pyrexia [None]
  - Altered state of consciousness [None]
  - Renal failure [None]
  - Benign prostatic hyperplasia [None]
  - Hypertonic bladder [None]
  - Delirium [None]
  - Agitation [None]
  - Sleep disorder [None]
  - Obstruction [None]
  - Adenoma benign [None]
  - Adenoma benign [None]
  - Nervous system disorder [None]
